FAERS Safety Report 9988026 (Version 1)
Quarter: 2014Q1

REPORT INFORMATION
  Report Type: Spontaneous
  Country: CA (occurrence: CA)
  Receive Date: 20140307
  Receipt Date: 20140307
  Transmission Date: 20141002
  Serious: Yes (Hospitalization, Other)
  Sender: FDA-Public Use
  Company Number: CA-B.I. PHARMACEUTICALS,INC./RIDGEFIELD-2014-BI-09392CN

PATIENT
  Age: 70 Year
  Sex: Male
  Weight: 73 kg

DRUGS (9)
  1. SPIRIVA [Suspect]
     Indication: PRODUCT USED FOR UNKNOWN INDICATION
     Route: 055
  2. HUMIRA [Suspect]
     Indication: PRODUCT USED FOR UNKNOWN INDICATION
     Dosage: 2.8571 MG
     Route: 058
  3. FIORINAL [Concomitant]
     Route: 048
  4. FUROSEMIDE [Concomitant]
     Route: 048
  5. IPRATROPIUM [Concomitant]
     Route: 055
  6. IRON [Concomitant]
     Route: 048
  7. METOPROLOL - 25 [Concomitant]
     Route: 048
  8. RAMIPRIL [Concomitant]
     Dosage: ROUTE: OPTHALMIC
  9. SALBUTAMOL [Concomitant]
     Route: 055

REACTIONS (9)
  - Fall [Recovered/Resolved]
  - Hip fracture [Recovered/Resolved]
  - Orthopaedic procedure [Recovered/Resolved]
  - Pain [Recovered/Resolved]
  - Walking aid user [Recovered/Resolved]
  - Weight decreased [Recovered/Resolved]
  - Hypersensitivity [Recovered/Resolved]
  - Pruritus [Recovered/Resolved]
  - Urticaria [Recovered/Resolved]
